FAERS Safety Report 4861385-5 (Version None)
Quarter: 2005Q4

REPORT INFORMATION
  Report Type: 
  Country: None (occurrence: None)
  Receive Date: 20051129
  Receipt Date: 20050713
  Transmission Date: 20060501
  Serious: Yes (Hospitalization, Other)
  Sender: FDA-Public Use
  Company Number: USA0507102340

PATIENT
  Age: 76 Year
  Sex: Female

DRUGS (9)
  1. ZYPREXA [Suspect]
     Indication: SCHIZOAFFECTIVE DISORDER
     Dosage: 10 MG
     Dates: start: 20050702, end: 20050702
  2. COUMADIN [Concomitant]
  3. SYNTHROID [Concomitant]
  4. RISPERDAL [Concomitant]
  5. PROTONIX [Concomitant]
  6. ATENOLOL [Concomitant]
  7. FOSAMAX [Concomitant]
  8. NORVASC [Concomitant]
  9. ATIVAN [Concomitant]

REACTIONS (8)
  - APNOEA [None]
  - BELLIGERENCE [None]
  - BLOOD PRESSURE DECREASED [None]
  - BLOOD PRESSURE IMMEASURABLE [None]
  - DEPRESSED LEVEL OF CONSCIOUSNESS [None]
  - PULSE ABSENT [None]
  - RESPIRATORY DEPRESSION [None]
  - URINARY INCONTINENCE [None]
